FAERS Safety Report 9885870 (Version 2)
Quarter: 2014Q1

REPORT INFORMATION
  Report Type: Spontaneous
  Country: US (occurrence: US)
  Receive Date: 20140210
  Receipt Date: 20140210
  Transmission Date: 20141002
  Serious: Yes (Hospitalization)
  Sender: FDA-Public Use
  Company Number: US-GLAXOSMITHKLINE-A0835216A

PATIENT
  Age: 63 Year
  Sex: Male
  Weight: 136.4 kg

DRUGS (5)
  1. AVANDARYL [Suspect]
     Indication: DIABETES MELLITUS
     Route: 048
     Dates: start: 2000, end: 20070322
  2. AVANDIA [Suspect]
     Indication: DIABETES MELLITUS
     Route: 048
  3. DIOVAN [Concomitant]
  4. LIPITOR [Concomitant]
  5. ZYRTEC [Concomitant]

REACTIONS (3)
  - Cardiac failure [Unknown]
  - Coronary artery disease [Unknown]
  - Cardiac disorder [Unknown]
